FAERS Safety Report 5124171-7 (Version None)
Quarter: 2006Q4

REPORT INFORMATION
  Report Type: 
  Country: None (occurrence: None)
  Receive Date: 20061010
  Receipt Date: 20060616
  Transmission Date: 20070319
  Serious: No
  Sender: FDA-Public Use
  Company Number: US-BRISTOL-MYERS SQUIBB COMPANY-13414909

PATIENT
  Age: 20 Year
  Sex: Female
  Weight: 74 kg

DRUGS (7)
  1. AVAPRO [Suspect]
     Indication: HYPERTENSION
     Route: 048
     Dates: start: 20060609, end: 20060614
  2. GLUCOPHAGE [Concomitant]
  3. CONTRACEPTIVE [Concomitant]
  4. ASPIRIN [Concomitant]
  5. SINGULAIR [Concomitant]
  6. FLONASE [Concomitant]
  7. ADVAIR DISKUS 100/50 [Concomitant]

REACTIONS (1)
  - NAUSEA [None]
